FAERS Safety Report 4480649-0 (Version None)
Quarter: 2004Q4

REPORT INFORMATION
  Report Type: 
  Country: None (occurrence: None)
  Receive Date: 20041019
  Receipt Date: 20041007
  Transmission Date: 20050328
  Serious: Yes (Other)
  Sender: FDA-Public Use
  Company Number: HQWYE610207OCT04

PATIENT
  Age: 73 Year
  Sex: Male

DRUGS (1)
  1. MINOCYCLINE HCL [Suspect]
     Indication: PEMPHIGOID

REACTIONS (1)
  - EOSINOPHILIC PNEUMONIA ACUTE [None]
